FAERS Safety Report 4898186-8 (Version None)
Quarter: 2006Q1

REPORT INFORMATION
  Report Type: 
  Country: None (occurrence: None)
  Receive Date: 20060127
  Receipt Date: 20060105
  Transmission Date: 20060701
  Serious: Yes (Other)
  Sender: FDA-Public Use
  Company Number: US200601000788

PATIENT
  Age: 54 Year
  Sex: Female

DRUGS (5)
  1. CYMBALTA [Suspect]
     Indication: PAIN
     Dosage: 60 MG EACH EVENING
     Dates: start: 20051001
  2. NEXIUM [Concomitant]
  3. SYNTHROID [Concomitant]
  4. BIO-AMPI (AMPICILLIN) [Concomitant]
  5. LIDODERM (LIDOCAINE) [Concomitant]

REACTIONS (6)
  - ANXIETY [None]
  - FATIGUE [None]
  - HYPERSOMNIA [None]
  - MUSCULAR WEAKNESS [None]
  - VITREOUS DETACHMENT [None]
  - VITREOUS FLOATERS [None]
